FAERS Safety Report 19448004 (Version 1)
Quarter: 2021Q2

REPORT INFORMATION
  Report Type: Spontaneous
  Country: US (occurrence: US)
  Receive Date: 20210621
  Receipt Date: 20210621
  Transmission Date: 20210717
  Serious: No
  Sender: FDA-Public Use
  Company Number: None

PATIENT
  Age: 77 Year
  Sex: Female
  Weight: 77 kg

DRUGS (1)
  1. OXCARBAZEPINE (OXCARBAZEPINE 300MG TAB) [Suspect]
     Active Substance: OXCARBAZEPINE
     Indication: PAIN
     Route: 048
     Dates: start: 20200923, end: 20210505

REACTIONS (3)
  - Asthenia [None]
  - Hyponatraemia [None]
  - Fatigue [None]

NARRATIVE: CASE EVENT DATE: 20210505
